FAERS Safety Report 5851133-4 (Version None)
Quarter: 2008Q3

REPORT INFORMATION
  Report Type: 
  Country: None (occurrence: None)
  Receive Date: 20080820
  Receipt Date: 20080813
  Transmission Date: 20090109
  Serious: Yes (Hospitalization)
  Sender: FDA-Public Use
  Company Number: B0532988A

PATIENT
  Age: 81 Year
  Sex: Male

DRUGS (4)
  1. ZOVIRAX [Suspect]
     Indication: HERPES OPHTHALMIC
     Dosage: 10MGK TWICE PER DAY
     Route: 042
     Dates: start: 20080602, end: 20080604
  2. ZOVIRAX [Concomitant]
     Route: 047
     Dates: start: 20080602
  3. ZELITREX [Concomitant]
     Indication: HERPES OPHTHALMIC
     Route: 048
     Dates: start: 20080601
  4. CORTANCYL [Concomitant]
     Dosage: 40MG PER DAY
     Route: 048
     Dates: start: 20080329

REACTIONS (3)
  - BLOOD CREATININE INCREASED [None]
  - BLOOD UREA INCREASED [None]
  - RENAL FAILURE ACUTE [None]
